FAERS Safety Report 16789322 (Version 1)
Quarter: 2019Q3

REPORT INFORMATION
  Report Type: Spontaneous
  Country: US (occurrence: US)
  Receive Date: 20190910
  Receipt Date: 20190910
  Transmission Date: 20191005
  Serious: No
  Sender: FDA-Public Use
  Company Number: US-TEVA-2019-US-1105709

PATIENT
  Age: 59 Year
  Sex: Female

DRUGS (1)
  1. CARBAMAZEPINE TABLETS [Suspect]
     Active Substance: CARBAMAZEPINE
     Indication: BIPOLAR DISORDER
     Dates: start: 2001

REACTIONS (2)
  - Muscle spasms [Recovered/Resolved]
  - Joint swelling [Recovered/Resolved]
